FAERS Safety Report 18460832 (Version 1)
Quarter: 2020Q4

REPORT INFORMATION
  Report Type: Report from Study
  Country: None (occurrence: NL)
  Receive Date: 20201103
  Receipt Date: 20201103
  Transmission Date: 20210114
  Serious: Yes (Hospitalization)
  Sender: FDA-Public Use
  Company Number: NL-ABBVIE-20K-114-3634556-00

PATIENT
  Sex: Female

DRUGS (6)
  1. MACROGOL [Concomitant]
     Active Substance: POLYETHYLENE GLYCOLS
     Indication: ABNORMAL FAECES
  2. DUODOPA [Suspect]
     Active Substance: CARBIDOPA\LEVODOPA
     Indication: PARKINSON^S DISEASE
     Dosage: MD: 0.0ML, CD: 5.7ML/H, ED: 4.5ML?REMAINS AT 24 HOURS
     Route: 050
     Dates: start: 20190520
  3. DUODOPA [Suspect]
     Active Substance: CARBIDOPA\LEVODOPA
     Dosage: MD: 4.6ML, CD: 5.6ML/H, ED: 4.5ML?REMAINS AT 24 HOURS
     Route: 050
  4. DUODOPA [Suspect]
     Active Substance: CARBIDOPA\LEVODOPA
     Dosage: MD:4.6ML, CD: 5.6ML/H, ED: 4.5ML?REMAINS AT 16 HOURS
     Route: 050
  5. DUODOPA [Suspect]
     Active Substance: CARBIDOPA\LEVODOPA
     Dosage: MD: 4.6ML, CD: 5.6ML/H, ED: 4.5ML, CND: 4.6ML/H, END: 4.0ML?REMAINS AT 24 HOURS
     Route: 050
  6. DUODOPA [Suspect]
     Active Substance: CARBIDOPA\LEVODOPA
     Dosage: MD: 4.0ML, CD: 5.6ML/H, ED: 4.0ML, CND: 4.6ML/H, END: 4.0ML?REMAINS AT 24 HOURS
     Route: 050

REACTIONS (1)
  - Mental disorder [Not Recovered/Not Resolved]
